FAERS Safety Report 5000523-0 (Version None)
Quarter: 2006Q2

REPORT INFORMATION
  Report Type: 
  Country: None (occurrence: None)
  Receive Date: 20060501
  Receipt Date: 20060418
  Transmission Date: 20061013
  Serious: Yes (Hospitalization)
  Sender: FDA-Public Use
  Company Number: 2006052938

PATIENT
  Sex: Female

DRUGS (3)
  1. DETROL LA [Suspect]
     Indication: URINARY INCONTINENCE
     Dosage: 4 MG (4 MG, 1 IN 1 D), ORAL/3 YEARS AGO
     Route: 048
  2. MULTIVITAMIN [Concomitant]
  3. GLUCOSAMINE (GLUCOSAMINE) [Concomitant]

REACTIONS (3)
  - CYST [None]
  - DRY MOUTH [None]
  - PHARYNGOLARYNGEAL PAIN [None]
